FAERS Safety Report 17798745 (Version 1)
Quarter: 2020Q2

REPORT INFORMATION
  Report Type: Spontaneous
  Country: CA (occurrence: CA)
  Receive Date: 20200518
  Receipt Date: 20200518
  Transmission Date: 20200714
  Serious: Yes (Death)
  Sender: FDA-Public Use
  Company Number: CA-PFIZER INC-2020193925

PATIENT
  Age: 64 Year
  Sex: Male

DRUGS (4)
  1. NAPROXEN. [Concomitant]
     Active Substance: NAPROXEN
     Dosage: UNK
  2. METHAMPHETAMINE [METAMFETAMINE] [Concomitant]
     Active Substance: METHAMPHETAMINE
     Dosage: UNK
  3. HYDROMORPHONE HYDROCHLORIDE. [Suspect]
     Active Substance: HYDROMORPHONE HYDROCHLORIDE
     Dosage: UNK
  4. CITALOPRAM [Concomitant]
     Active Substance: CITALOPRAM HYDROBROMIDE
     Dosage: UNK

REACTIONS (7)
  - Pulmonary congestion [Fatal]
  - Foaming at mouth [Fatal]
  - Snoring [Fatal]
  - Vomiting [Fatal]
  - Aspiration [Fatal]
  - Pulmonary oedema [Fatal]
  - Cardio-respiratory arrest [Fatal]
